FAERS Safety Report 5073121-0 (Version None)
Quarter: 2006Q3

REPORT INFORMATION
  Report Type: 
  Country: None (occurrence: None)
  Receive Date: 20060801
  Receipt Date: 20060725
  Transmission Date: 20061208
  Serious: Yes (Life-Threatening)
  Sender: FDA-Public Use
  Company Number: 200610225BBE

PATIENT
  Age: 81 Year
  Sex: Male

DRUGS (2)
  1. GAMUNEX [Suspect]
     Indication: TOXIC EPIDERMAL NECROLYSIS
  2. ALLOPURINOL [Concomitant]

REACTIONS (4)
  - ACUTE MYOCARDIAL INFARCTION [None]
  - CHEST PAIN [None]
  - DYSPNOEA [None]
  - MYOCARDIAL ISCHAEMIA [None]
